FAERS Safety Report 10148859 (Version 2)
Quarter: 2017Q2

REPORT INFORMATION
  Report Type: Spontaneous
  Country: CA (occurrence: CA)
  Receive Date: 20140502
  Receipt Date: 20170620
  Transmission Date: 20170829
  Serious: Yes (Hospitalization, Other)
  Sender: FDA-Public Use
  Company Number: CA-009507513-1404CAN014456

PATIENT
  Age: 44 Year
  Sex: Male

DRUGS (15)
  1. FRISIUM [Interacting]
     Active Substance: CLOBAZAM
     Indication: SEIZURE
     Dosage: 10 MG, DAILY DOSE
     Route: 048
     Dates: start: 200801, end: 200810
  2. INTELENCE [Interacting]
     Active Substance: ETRAVIRINE
     Indication: HIV INFECTION
     Dosage: UNK
     Route: 048
     Dates: start: 201006
  3. VALPROIC ACID. [Concomitant]
     Active Substance: VALPROIC ACID
     Indication: SEIZURE
     Dosage: 1500 MG, QD
     Route: 065
     Dates: start: 200706, end: 200801
  4. VALPROIC ACID. [Concomitant]
     Active Substance: VALPROIC ACID
     Dosage: 2000 MG, QD
     Route: 065
     Dates: start: 201012
  5. SULFAMETHOXAZOLE (+) TRIMETHOPRIM [Concomitant]
     Active Substance: SULFAMETHOXAZOLE\TRIMETHOPRIM
     Indication: CEREBRAL TOXOPLASMOSIS
  6. ISENTRESS [Suspect]
     Active Substance: RALTEGRAVIR POTASSIUM
     Indication: HIV INFECTION
     Dosage: UNK
     Route: 048
     Dates: start: 200710
  7. VALPROIC ACID. [Concomitant]
     Active Substance: VALPROIC ACID
     Dosage: 2500 MG, QD
     Route: 065
     Dates: start: 200801, end: 201012
  8. FRISIUM [Interacting]
     Active Substance: CLOBAZAM
     Dosage: 20 MG, DAILY DOSE ^2 YEAR^
     Route: 048
     Dates: start: 200810, end: 201012
  9. KALETRA [Interacting]
     Active Substance: LOPINAVIR\RITONAVIR
     Indication: HIV INFECTION
     Dosage: UNK
     Route: 065
     Dates: start: 200710
  10. TRUVADA [Concomitant]
     Active Substance: EMTRICITABINE\TENOFOVIR DISOPROXIL FUMARATE
     Indication: HIV INFECTION
     Dosage: UNK
     Route: 048
     Dates: start: 201006
  11. FRISIUM [Interacting]
     Active Substance: CLOBAZAM
     Dosage: 10 MG, DAILY DOSE
     Route: 048
     Dates: start: 201102
  12. LAMIVUDINE AND ZIDOVUDINE [Concomitant]
     Active Substance: LAMIVUDINE\ZIDOVUDINE
     Indication: HIV INFECTION
  13. EFAVIRENZ [Concomitant]
     Active Substance: EFAVIRENZ
     Indication: HIV INFECTION
  14. FRISIUM [Interacting]
     Active Substance: CLOBAZAM
     Dosage: 10 MG, DAILY DOSE ^2 MONTH^
     Route: 048
     Dates: start: 201012, end: 201102
  15. TENOFOVIR [Concomitant]
     Active Substance: TENOFOVIR
     Indication: HIV INFECTION
     Dosage: UNK
     Dates: start: 200701, end: 201006

REACTIONS (6)
  - Slow speech [Recovered/Resolved]
  - Gait disturbance [Recovered/Resolved]
  - Dysarthria [Recovered/Resolved]
  - Somnolence [Recovered/Resolved]
  - Asthenia [Recovered/Resolved]
  - Drug interaction [Recovered/Resolved]

NARRATIVE: CASE EVENT DATE: 201007
